FAERS Safety Report 21681458 (Version 1)
Quarter: 2022Q4

REPORT INFORMATION
  Report Type: Report from Study
  Country: US (occurrence: US)
  Receive Date: 20221205
  Receipt Date: 20221205
  Transmission Date: 20230113
  Serious: No
  Sender: FDA-Public Use
  Company Number: US-ABBVIE-4214514

PATIENT
  Sex: Female

DRUGS (2)
  1. HUMIRA [Suspect]
     Active Substance: ADALIMUMAB
     Indication: Colitis ulcerative
     Dosage: FORM STRENGTH: 40 MILLIGRAM
     Route: 058
     Dates: end: 202211
  2. AZATHIOPRINE [Suspect]
     Active Substance: AZATHIOPRINE
     Indication: Product used for unknown indication

REACTIONS (8)
  - Painful respiration [Unknown]
  - Therapeutic product effect decreased [Not Recovered/Not Resolved]
  - Nausea [Unknown]
  - Cough [Unknown]
  - Vomiting [Unknown]
  - Myalgia [Unknown]
  - Stress [Unknown]
  - Nasal congestion [Unknown]
